FAERS Safety Report 4847996-1 (Version None)
Quarter: 2005Q4

REPORT INFORMATION
  Report Type: 
  Country: None (occurrence: None)
  Receive Date: 20051206
  Receipt Date: 20051115
  Transmission Date: 20060501
  Serious: Yes (Hospitalization)
  Sender: FDA-Public Use
  Company Number: USA0510110466

PATIENT
  Age: 15 Year
  Sex: Female
  Weight: 52.2 kg

DRUGS (1)
  1. STRATTERA [Suspect]
     Indication: ATTENTION DEFICIT/HYPERACTIVITY DISORDER
     Dosage: SEE IMAGE
     Dates: start: 20051006, end: 20051019

REACTIONS (3)
  - INTENTIONAL DRUG MISUSE [None]
  - OVERDOSE [None]
  - SUICIDE ATTEMPT [None]
